FAERS Safety Report 11294543 (Version 1)
Quarter: 2015Q2

REPORT INFORMATION
  Report Type: Spontaneous
  Country: US (occurrence: None)
  Receive Date: 20150623
  Receipt Date: 20150623
  Transmission Date: 20150821
  Serious: Yes (Other)
  Sender: FDA-Public Use
  Company Number: RB-70907-2014

PATIENT
  Age: 16 Year
  Sex: Male

DRUGS (1)
  1. DEXTROMETHORPHAN/GUAIFENESIN 1200 MG (RB (RECKITT BENCKISER)) [Suspect]
     Active Substance: DEXTROMETHORPHAN\GUAIFENESIN
     Indication: PRODUCT USED FOR UNKNOWN INDICATION
     Dosage: INGESTED 12 PRODUCT TABLETS INTENTIONALLY
     Route: 048
     Dates: start: 20141129

REACTIONS (2)
  - No adverse event [None]
  - Intentional overdose [None]

NARRATIVE: CASE EVENT DATE: 20141129
